FAERS Safety Report 7366881-7 (Version None)
Quarter: 2011Q1

REPORT INFORMATION
  Report Type: 
  Country: None (occurrence: None)
  Receive Date: 20110322
  Receipt Date: 20110314
  Transmission Date: 20110831
  Serious: Yes (Hospitalization)
  Sender: FDA-Public Use
  Company Number: A0918035A

PATIENT
  Age: 50 Year
  Sex: Male

DRUGS (4)
  1. SPIRIVA [Concomitant]
  2. ALBUTEROL [Concomitant]
  3. ADVAIR DISKUS 100/50 [Suspect]
     Indication: CHRONIC OBSTRUCTIVE PULMONARY DISEASE
     Dosage: 1PUFF TWICE PER DAY
     Route: 055
     Dates: start: 20060401, end: 20090101
  4. PREDNISONE [Suspect]
     Dosage: 30MG PER DAY
     Route: 048
     Dates: start: 20110201

REACTIONS (7)
  - MOOD ALTERED [None]
  - ANXIETY [None]
  - H1N1 INFLUENZA [None]
  - CYANOSIS [None]
  - INCREASED APPETITE [None]
  - PNEUMONIA [None]
  - DYSPNOEA [None]
